FAERS Safety Report 14416780 (Version 1)
Quarter: 2018Q1

REPORT INFORMATION
  Report Type: Spontaneous
  Country: US (occurrence: US)
  Receive Date: 20180122
  Receipt Date: 20180122
  Transmission Date: 20180509
  Serious: Yes (Death)
  Sender: FDA-Public Use
  Company Number: US-ASTELLAS-2018US003779

PATIENT
  Age: 50 Year
  Sex: Male

DRUGS (1)
  1. PROGRAF [Suspect]
     Active Substance: TACROLIMUS\TACROLIMUS ANHYDROUS
     Indication: RENAL TRANSPLANT
     Dosage: 1MG/2MG EVERY MORNING/ EVERY EVENING, TWICE DAILY
     Route: 048
     Dates: start: 20080924, end: 20171220

REACTIONS (1)
  - Death [Fatal]

NARRATIVE: CASE EVENT DATE: 20171220
